FAERS Safety Report 25218013 (Version 3)
Quarter: 2025Q2

REPORT INFORMATION
  Report Type: Spontaneous
  Country: US (occurrence: US)
  Receive Date: 20250421
  Receipt Date: 20250531
  Transmission Date: 20250717
  Serious: No
  Sender: VIIV
  Company Number: US-VIIV HEALTHCARE-US2025045473

PATIENT
  Sex: Male
  Weight: 95.25 kg

DRUGS (3)
  1. DOVATO [Suspect]
     Active Substance: DOLUTEGRAVIR SODIUM\LAMIVUDINE
     Indication: HIV infection
     Dosage: 1 DF, QD (50-300 MG)
     Route: 048
     Dates: start: 2017
  2. METOPROLOL [Concomitant]
     Active Substance: METOPROLOL
     Indication: Blood pressure measurement
     Dosage: 1 DF, QD (50)
  3. METOPROLOL [Concomitant]
     Active Substance: METOPROLOL
     Dosage: 1 DF, QD (100)
     Dates: start: 201701

REACTIONS (2)
  - Asthma [Not Recovered/Not Resolved]
  - Nausea [Not Recovered/Not Resolved]
